FAERS Safety Report 9784518 (Version 2)
Quarter: 2014Q1

REPORT INFORMATION
  Report Type: Spontaneous
  Country: US (occurrence: US)
  Receive Date: 20131226
  Receipt Date: 20140115
  Transmission Date: 20141002
  Serious: Yes (Life-Threatening, Hospitalization)
  Sender: FDA-Public Use
  Company Number: US-B.I. PHARMACEUTICALS,INC./RIDGEFIELD-2013-BI-42975BP

PATIENT
  Age: 51 Year
  Sex: Male
  Weight: 128 kg

DRUGS (12)
  1. SPIRIVA [Suspect]
     Indication: CHRONIC OBSTRUCTIVE PULMONARY DISEASE
     Dosage: 18 MCG
     Route: 048
     Dates: start: 2009
  2. SPIRIVA [Suspect]
     Dosage: 18 MCG
     Route: 055
     Dates: start: 2009
  3. HUMALOG [Concomitant]
     Indication: TYPE 2 DIABETES MELLITUS
     Route: 058
     Dates: start: 2006
  4. DICLOFENAC [Concomitant]
     Dosage: 150 MG
     Route: 048
     Dates: start: 2011
  5. CYMBALTA [Concomitant]
     Indication: ARTHRITIS
     Dosage: 120 MG
     Route: 048
     Dates: start: 2012
  6. CRESTOR [Concomitant]
     Dosage: 20 MG
     Route: 048
     Dates: start: 2010
  7. LANTUS [Concomitant]
     Indication: TYPE 2 DIABETES MELLITUS
     Dosage: 90 U
     Route: 058
     Dates: start: 2006
  8. NEURONTIN [Concomitant]
     Indication: INTERVERTEBRAL DISC DEGENERATION
     Dosage: 3600 MG
     Route: 048
     Dates: start: 2011
  9. NEURONTIN [Concomitant]
     Indication: NEUROPATHY PERIPHERAL
  10. TRAMADOL [Concomitant]
     Indication: ARTHRALGIA
     Dosage: 150 MG
     Route: 048
     Dates: start: 2012
  11. CYCLOBENZAPRINE [Concomitant]
     Indication: ARTHRALGIA
     Dosage: 60 MG
     Route: 048
     Dates: start: 2011
  12. LISINOPRIL [Concomitant]

REACTIONS (1)
  - Transient ischaemic attack [Recovered/Resolved]
